FAERS Safety Report 10400233 (Version 1)
Quarter: 2014Q1

REPORT INFORMATION
  Report Type: Spontaneous
  Country: US (occurrence: None)
  Receive Date: 20130815
  Receipt Date: 20130815
  Transmission Date: 20141002
  Serious: Yes (Hospitalization, Other)
  Sender: FDA-Public Use
  Company Number: ADR-2012-01276

PATIENT
  Age: 49 Year
  Sex: Female

DRUGS (2)
  1. BACLOFEN INTRATHECAL (BACLOFEN INJECTION) [Suspect]
     Indication: MUSCLE SPASTICITY
  2. BACLOFEN INTRATHECAL (BACLOFEN INJECTION) [Suspect]
     Indication: SPINAL CORD INJURY

REACTIONS (3)
  - Anxiety [None]
  - Muscle spasticity [None]
  - Pain [None]
